FAERS Safety Report 10526424 (Version 3)
Quarter: 2014Q4

REPORT INFORMATION
  Report Type: Spontaneous
  Country: CZ (occurrence: CZ)
  Receive Date: 20141020
  Receipt Date: 20141127
  Transmission Date: 20150528
  Serious: Yes (Life-Threatening, Hospitalization, Disabling, Other)
  Sender: FDA-Public Use
  Company Number: CZ-AMGEN-CZESP2014079446

PATIENT
  Age: 64 Year
  Sex: Male

DRUGS (6)
  1. BERODUAL [Concomitant]
     Active Substance: FENOTEROL HYDROBROMIDE\IPRATROPIUM BROMIDE
     Dosage: UNK, AS NEEDED
  2. SERETIDE [Concomitant]
     Active Substance: FLUTICASONE FUROATE\SALMETEROL XINAFOATE
     Dosage: UNK
  3. MEDROL [Concomitant]
     Active Substance: METHYLPREDNISOLONE
     Dosage: 4 MG, 1X/DAY
  4. VERAL                              /00372302/ [Concomitant]
     Dosage: 25 MG, UNK
  5. ENBREL [Suspect]
     Active Substance: ETANERCEPT
     Indication: RHEUMATOID ARTHRITIS
     Dosage: 50 MG, WEEKLY
     Route: 058
     Dates: start: 20091001, end: 20140105
  6. APO-OMEPRAZOLE [Concomitant]
     Active Substance: OMEPRAZOLE
     Dosage: 20 MG, 1X/DAY, IN THE EVENING

REACTIONS (7)
  - Acute respiratory failure [Unknown]
  - Enteritis necroticans [Recovered/Resolved with Sequelae]
  - Decubitus ulcer [Unknown]
  - Cardiac failure [Unknown]
  - Secretion discharge [Unknown]
  - Sepsis [Unknown]
  - Peritonitis [Recovered/Resolved with Sequelae]

NARRATIVE: CASE EVENT DATE: 2014
